FAERS Safety Report 8161957-9 (Version None)
Quarter: 2012Q1

REPORT INFORMATION
  Report Type: 
  Country: None (occurrence: None)
  Receive Date: 20120224
  Receipt Date: 20120222
  Transmission Date: 20120608
  Serious: Yes (Life-Threatening, Hospitalization)
  Sender: FDA-Public Use
  Company Number: SE-PFIZER INC-2010023045

PATIENT
  Age: 18 Year
  Sex: Male

DRUGS (9)
  1. TESTOSTERONE [Concomitant]
     Dosage: 1 G, EVERY 12 WEEKS
  2. RISPERDAL [Concomitant]
     Dosage: UNK
  3. LEVOTHYROXINE SODIUM [Concomitant]
     Dosage: 150 UG, 1X/DAY
  4. DESMOPRESSIN [Concomitant]
     Dosage: 40 UG, 1X/DAY
  5. CORTONE [Concomitant]
     Dosage: 17.5 MG, 1X/DAY
  6. GENOTROPIN [Suspect]
     Indication: GLIOMA
     Dosage: 1 MG, 1X/DAY
     Dates: end: 20090211
  7. GENOTROPIN [Suspect]
     Dosage: 1 MG, 1X/DAY
     Dates: start: 20090216
  8. PREDNISOLONE [Concomitant]
     Dosage: 1.25 MG, 1X/DAY
  9. SERTRALINE [Concomitant]
     Dosage: UNK

REACTIONS (1)
  - HYDROCEPHALUS [None]
